FAERS Safety Report 14604565 (Version 3)
Quarter: 2018Q4

REPORT INFORMATION
  Report Type: Report from Study
  Country: DE (occurrence: DE)
  Receive Date: 20180306
  Receipt Date: 20181226
  Transmission Date: 20190204
  Serious: Yes (Death, Hospitalization, Other)
  Sender: FDA-Public Use
  Company Number: DE-PFIZER INC-2018091069

PATIENT
  Age: 58 Year
  Sex: Female
  Weight: 81 kg

DRUGS (32)
  1. DOCETAXEL. [Suspect]
     Active Substance: DOCETAXEL
     Dosage: 183 MG, EVERY 3 WEEKS
     Route: 042
     Dates: start: 20140826, end: 20140916
  2. HERCEPTIN [Suspect]
     Active Substance: TRASTUZUMAB
     Dosage: 422 MG, UNK
     Route: 042
  3. CIPROBAY [Concomitant]
     Active Substance: CIPROFLOXACIN
     Dosage: 1000 MG, 1X/DAY
     Route: 048
     Dates: start: 20140903, end: 20140907
  4. RANITIDIN [Concomitant]
     Active Substance: RANITIDINE HYDROCHLORIDE
     Indication: PREMEDICATION
     Dosage: 50 MG, UNK
     Route: 042
  5. TAVEGIL [Concomitant]
     Active Substance: CLEMASTINE FUMARATE
     Dosage: IN EACH CYCLE
     Route: 042
     Dates: start: 20140331
  6. L-THYROXIN [Concomitant]
     Active Substance: LEVOTHYROXINE SODIUM
     Indication: HYPOTHYROIDISM
     Dosage: 75 UG, 1X/DAY
     Route: 048
  7. DOCETAXEL. [Suspect]
     Active Substance: DOCETAXEL
     Dosage: 138.75 MG, EVERY 3 WEEKS
     Route: 042
     Dates: start: 20140422, end: 20140422
  8. HERCEPTIN [Suspect]
     Active Substance: TRASTUZUMAB
     Dosage: 648 MG, LOADING DOSE
     Route: 042
     Dates: start: 20140310, end: 20140310
  9. DEXAMETHASON [Concomitant]
     Active Substance: DEXAMETHASONE
     Dosage: 4 MG, 1X/DAY
     Route: 048
     Dates: start: 20140303, end: 20140310
  10. DEXAMETHASON [Concomitant]
     Active Substance: DEXAMETHASONE
     Dosage: 2 MG, 1X/DAY
     Route: 048
     Dates: start: 20140414, end: 20140416
  11. DEXAMETHASON [Concomitant]
     Active Substance: DEXAMETHASONE
     Dosage: 4 MG, 1X/DAY
     Route: 048
     Dates: start: 20140411, end: 20140413
  12. CIPROBAY [Concomitant]
     Active Substance: CIPROFLOXACIN
     Indication: LEUKOPENIA
     Dosage: 1000 MG, 1X/DAY
     Route: 048
     Dates: start: 20140523, end: 20140527
  13. DOCETAXEL. [Suspect]
     Active Substance: DOCETAXEL
     Indication: HER-2 POSITIVE BREAST CANCER
     Dosage: 140.25 MG, EVERY 3 WEEKS
     Route: 042
     Dates: start: 20140331, end: 20140331
  14. HERCEPTIN [Suspect]
     Active Substance: TRASTUZUMAB
     Dosage: 486 MG, EVERY 3 WEEKS
     Route: 042
     Dates: start: 20140715, end: 20140715
  15. DOCETAXEL. [Suspect]
     Active Substance: DOCETAXEL
     Dosage: 116.4 MG, EVERY 3 WEEKS
     Route: 042
     Dates: start: 20140310, end: 20140310
  16. CIPROBAY [Concomitant]
     Active Substance: CIPROFLOXACIN
     Indication: NEUTROPENIA
     Dosage: 1000 MG, 1X/DAY
     Route: 048
     Dates: start: 20140319, end: 20140324
  17. CIPROBAY [Concomitant]
     Active Substance: CIPROFLOXACIN
     Dosage: 1000 MG, 1X/DAY
     Route: 048
     Dates: start: 20140319, end: 20140324
  18. CIPROHEXAL [Concomitant]
     Indication: LEUKOPENIA
     Dosage: 1000 MG, 1X/DAY
     Route: 048
     Dates: start: 20140610, end: 20140617
  19. HERCEPTIN [Suspect]
     Active Substance: TRASTUZUMAB
     Indication: HER-2 POSITIVE BREAST CANCER
     Dosage: 648 MG, EVERY 3 WEEKS
     Route: 042
     Dates: end: 20140916
  20. HERCEPTIN [Suspect]
     Active Substance: TRASTUZUMAB
     Dosage: 444 MG, EVERY 3 WEEKS
     Route: 042
     Dates: start: 20140331, end: 20140331
  21. HERCEPTIN [Suspect]
     Active Substance: TRASTUZUMAB
     Dosage: 432 MG, EVERY 3 WEEKS
     Route: 042
     Dates: start: 20130422, end: 20130422
  22. PERTUZUMAB. [Suspect]
     Active Substance: PERTUZUMAB
     Indication: HER-2 POSITIVE BREAST CANCER
     Dosage: 420 MG, EVERY 3 WEEKS (MAINTENANCE DOSE)
     Route: 042
     Dates: start: 20140331, end: 20141013
  23. PERTUZUMAB. [Suspect]
     Active Substance: PERTUZUMAB
     Dosage: 840 MG, (LOADING DOSE)
     Route: 042
     Dates: start: 20140307, end: 20140307
  24. DEXAMETHASON [Concomitant]
     Active Substance: DEXAMETHASONE
     Dosage: 6 MG, 1X/DAY
     Route: 048
     Dates: start: 20140408, end: 20140410
  25. CIPROHEXAL [Concomitant]
     Indication: NEUTROPENIA
     Dosage: 1000 MG, 1X/DAY
     Route: 048
     Dates: start: 20140812, end: 20140816
  26. DOCETAXEL. [Suspect]
     Active Substance: DOCETAXEL
     Dosage: 187 MG, EVERY 3 WEEKS
     Route: 042
     Dates: start: 20140603, end: 20140624
  27. DOCETAXEL. [Suspect]
     Active Substance: DOCETAXEL
     Dosage: 140.25 MG, EVERY 3 WEEKS
     Route: 042
     Dates: start: 20140513, end: 20140513
  28. HERCEPTIN [Suspect]
     Active Substance: TRASTUZUMAB
     Dosage: 444 MG, EVERY 3 WEEKS
     Route: 042
     Dates: start: 20140513, end: 20140624
  29. DEXAMETHASON [Concomitant]
     Active Substance: DEXAMETHASONE
     Indication: HYPERSENSITIVITY
     Dosage: 8 MG, UNK
     Route: 042
  30. DEXAMETHASON [Concomitant]
     Active Substance: DEXAMETHASONE
     Dosage: 8 MG, 1X/DAY
     Route: 048
     Dates: start: 20140303, end: 20140407
  31. POTASSIUM [Concomitant]
     Active Substance: POTASSIUM
     Indication: HYPOKALAEMIA
  32. CLEMASTINE FUMARATE. [Concomitant]
     Active Substance: CLEMASTINE FUMARATE

REACTIONS (19)
  - Disorientation [Not Recovered/Not Resolved]
  - Gait disturbance [Not Recovered/Not Resolved]
  - Weight decreased [Not Recovered/Not Resolved]
  - Cerebral disorder [Fatal]
  - Dysstasia [Not Recovered/Not Resolved]
  - Visual impairment [Not Recovered/Not Resolved]
  - Visual impairment [Not Recovered/Not Resolved]
  - Diarrhoea [Recovered/Resolved]
  - Leukopenia [Recovered/Resolved]
  - Leukopenia [Recovered/Resolved]
  - Neutropenia [Recovered/Resolved]
  - Compression fracture [Not Recovered/Not Resolved]
  - Neoplasm progression [Fatal]
  - Balance disorder [Not Recovered/Not Resolved]
  - Fall [Unknown]
  - Vomiting [Recovered/Resolved]
  - Fatigue [Not Recovered/Not Resolved]
  - Dysarthria [Not Recovered/Not Resolved]
  - Paraesthesia [Not Recovered/Not Resolved]

NARRATIVE: CASE EVENT DATE: 20140312
